FAERS Safety Report 7724754-1 (Version None)
Quarter: 2011Q3

REPORT INFORMATION
  Report Type: 
  Country: None (occurrence: None)
  Receive Date: 20110901
  Receipt Date: 20110817
  Transmission Date: 20111222
  Serious: Yes (Other)
  Sender: FDA-Public Use
  Company Number: US-BAYER-2011-076122

PATIENT
  Sex: Male

DRUGS (1)
  1. ALEVE (CAPLET) [Suspect]
     Dosage: UNK DF, UNK
     Route: 048

REACTIONS (3)
  - NAUSEA [None]
  - DYSPNOEA [None]
  - DRUG ABUSER [None]
